FAERS Safety Report 24862429 (Version 1)
Quarter: 2025Q1

REPORT INFORMATION
  Report Type: Spontaneous
  Country: US (occurrence: US)
  Receive Date: 20250120
  Receipt Date: 20250120
  Transmission Date: 20250409
  Serious: No
  Sender: Haleon PLC
  Company Number: US-HALEON-2223599

PATIENT

DRUGS (2)
  1. ADVIL DUAL ACTION WITH ACETAMINOPHEN BACK PAIN [Suspect]
     Active Substance: ACETAMINOPHEN\IBUPROFEN
     Indication: Arthralgia
  2. ADVIL [Suspect]
     Active Substance: IBUPROFEN
     Indication: Arthralgia

REACTIONS (3)
  - Drug effective for unapproved indication [Unknown]
  - Drug ineffective [Unknown]
  - Product use in unapproved indication [Unknown]
